FAERS Safety Report 7210584-6 (Version None)
Quarter: 2011Q1

REPORT INFORMATION
  Report Type: 
  Country: None (occurrence: None)
  Receive Date: 20110105
  Receipt Date: 20101228
  Transmission Date: 20110831
  Serious: Yes (Hospitalization, Other)
  Sender: FDA-Public Use
  Company Number: PHHY2010US41212

PATIENT
  Sex: Female

DRUGS (11)
  1. EXTAVIA [Suspect]
     Indication: MULTIPLE SCLEROSIS
     Dosage: 0.062 MG, QOD
     Route: 058
  2. FLEXERIL [Concomitant]
     Dosage: 10 MG, QD
  3. EXTAVIA [Suspect]
     Dosage: 0.125 MG, QOD
     Route: 058
     Dates: start: 20100518
  4. FLEXERIL [Concomitant]
     Dosage: 10 MG, BID
  5. ALBUTEROL [Concomitant]
  6. EXTAVIA [Suspect]
     Dosage: 0.062 MG, QOD
     Route: 058
  7. KLONOPIN [Concomitant]
     Dosage: 0.5 MG, QHS
  8. EXTAVIA [Suspect]
     Dosage: UNK
     Route: 058
  9. ADVAIR [Suspect]
     Dosage: 250/50
  10. IBUPROFEN [Concomitant]
     Dosage: 800 MG, BID
  11. KLONOPIN [Concomitant]
     Dosage: HALF TABLET AT HOURS OF SLEEP

REACTIONS (7)
  - PULMONARY CONGESTION [None]
  - ASTHMA [None]
  - DRUG HYPERSENSITIVITY [None]
  - INFLUENZA LIKE ILLNESS [None]
  - PYREXIA [None]
  - PAIN [None]
  - OESOPHAGEAL RUPTURE [None]
